FAERS Safety Report 24032156 (Version 3)
Quarter: 2025Q3

REPORT INFORMATION
  Report Type: Spontaneous
  Country: US (occurrence: US)
  Receive Date: 20240630
  Receipt Date: 20250810
  Transmission Date: 20251021
  Serious: No
  Sender: ALEXION PHARMACEUTICALS
  Company Number: 2024A141526

PATIENT
  Sex: Female

DRUGS (1)
  1. PRAMLINTIDE ACETATE [Suspect]
     Active Substance: PRAMLINTIDE ACETATE

REACTIONS (4)
  - Illness [Unknown]
  - Device delivery system issue [Unknown]
  - Incorrect dose administered by device [Unknown]
  - Device leakage [Unknown]
